FAERS Safety Report 12395348 (Version 1)
Quarter: 2016Q2

REPORT INFORMATION
  Report Type: Report from Study
  Country: US (occurrence: US)
  Receive Date: 20160523
  Receipt Date: 20160523
  Transmission Date: 20160815
  Serious: Yes (Hospitalization, Other)
  Sender: FDA-Public Use
  Company Number: US-GILEAD-2016-0214511

PATIENT
  Age: 67 Year
  Sex: Female

DRUGS (7)
  1. VITAMIN B12 [Concomitant]
     Active Substance: CYANOCOBALAMIN
  2. BIOTIN [Concomitant]
     Active Substance: BIOTIN
  3. POTASSIUM [Concomitant]
     Active Substance: POTASSIUM
  4. METFORMIN [Concomitant]
     Active Substance: METFORMIN HYDROCHLORIDE
  5. ADEMPAS [Concomitant]
     Active Substance: RIOCIGUAT
  6. AMBRISENTAN [Suspect]
     Active Substance: AMBRISENTAN
     Indication: PULMONARY HYPERTENSION
     Dosage: 10 MG, QD
     Route: 065
     Dates: start: 20130904
  7. LASIX [Concomitant]
     Active Substance: FUROSEMIDE

REACTIONS (6)
  - Oral herpes [Not Recovered/Not Resolved]
  - Pneumothorax [Unknown]
  - Nasal herpes [Not Recovered/Not Resolved]
  - Cardiac failure congestive [Unknown]
  - Drug dose omission [Recovered/Resolved]
  - Pneumonia [Unknown]

NARRATIVE: CASE EVENT DATE: 20160428
